FAERS Safety Report 23269603 (Version 1)
Quarter: 2023Q4

REPORT INFORMATION
  Report Type: Spontaneous
  Country: RU (occurrence: None)
  Receive Date: 20231207
  Receipt Date: 20231207
  Transmission Date: 20240110
  Serious: Yes (Other)
  Sender: FDA-Public Use
  Company Number: RU-ROCHE-3466387

PATIENT
  Age: 59 Year
  Sex: Male

DRUGS (8)
  1. ATEZOLIZUMAB [Suspect]
     Active Substance: ATEZOLIZUMAB
     Indication: Lung adenocarcinoma
     Dosage: FOR 4 CYCLES
     Route: 065
     Dates: start: 20220618, end: 20220818
  2. ATEZOLIZUMAB [Suspect]
     Active Substance: ATEZOLIZUMAB
     Route: 065
     Dates: start: 20220909
  3. ATEZOLIZUMAB [Suspect]
     Active Substance: ATEZOLIZUMAB
     Route: 065
     Dates: start: 20221215
  4. BEVACIZUMAB [Suspect]
     Active Substance: BEVACIZUMAB
     Indication: Lung adenocarcinoma
     Dosage: FOR 4 CYCLES
     Route: 065
     Dates: start: 20220618, end: 20220818
  5. BEVACIZUMAB [Suspect]
     Active Substance: BEVACIZUMAB
     Route: 065
     Dates: start: 20220909
  6. BEVACIZUMAB [Suspect]
     Active Substance: BEVACIZUMAB
     Route: 065
     Dates: start: 20221215
  7. PACLITAXEL [Suspect]
     Active Substance: PACLITAXEL
     Indication: Lung adenocarcinoma
     Dosage: FOR 4 CYCLES
     Route: 065
     Dates: start: 20220618, end: 20220818
  8. CARBOPLATIN [Suspect]
     Active Substance: CARBOPLATIN
     Indication: Lung adenocarcinoma
     Dosage: AUC 6   FOR 4 CYCLES
     Route: 065
     Dates: start: 20220618, end: 20220818

REACTIONS (4)
  - Hypothyroidism [Unknown]
  - Neutropenia [Unknown]
  - Hypertension [Unknown]
  - Disease progression [Unknown]
